FAERS Safety Report 20320849 (Version 1)
Quarter: 2022Q1

REPORT INFORMATION
  Report Type: Spontaneous
  Country: US (occurrence: None)
  Receive Date: 20220110
  Receipt Date: 20220110
  Transmission Date: 20220423
  Serious: Yes (Death)
  Sender: FDA-Public Use
  Company Number: None

PATIENT
  Age: 38 Year
  Sex: Male

DRUGS (4)
  1. HERBALS\MITRAGYNINE [Suspect]
     Active Substance: HERBALS\MITRAGYNINE
     Indication: Anxiety
  2. VENLAFAXINE [Concomitant]
  3. DOXEPIN [Concomitant]
     Active Substance: DOXEPIN
  4. CLONAZEPAM [Concomitant]

REACTIONS (9)
  - Overdose [None]
  - Arteriosclerosis [None]
  - Cardiovascular disorder [None]
  - Congestive cardiomyopathy [None]
  - Obesity [None]
  - Hepatic steatosis [None]
  - Blood caffeine increased [None]
  - Drug screen positive [None]
  - Substance use [None]

NARRATIVE: CASE EVENT DATE: 20210601
